FAERS Safety Report 13687200 (Version 1)
Quarter: 2017Q2

REPORT INFORMATION
  Report Type: Spontaneous
  Country: RO (occurrence: RO)
  Receive Date: 20170623
  Receipt Date: 20170623
  Transmission Date: 20170830
  Serious: Yes (Other)
  Sender: FDA-Public Use
  Company Number: RO-FRESENIUS KABI-FK201705294

PATIENT
  Age: 60 Year
  Sex: Male

DRUGS (2)
  1. ZOLEDRONIC ACID (MANUFACTURER UNKNOWN) [Suspect]
     Active Substance: ZOLEDRONIC ACID
     Indication: RENAL CANCER
     Route: 065
  2. SUNITINIB [Suspect]
     Active Substance: SUNITINIB
     Indication: RENAL CANCER
     Route: 048

REACTIONS (10)
  - Neurotoxicity [Unknown]
  - Drug resistance [Unknown]
  - Oedema [Unknown]
  - Off label use [Unknown]
  - Hypertension [Unknown]
  - Fatigue [Unknown]
  - Yellow skin [Unknown]
  - Eye swelling [Unknown]
  - Medication error [Unknown]
  - Dry skin [Unknown]
